FAERS Safety Report 16360714 (Version 1)
Quarter: 2019Q2

REPORT INFORMATION
  Report Type: Spontaneous
  Country: US (occurrence: US)
  Receive Date: 20190528
  Receipt Date: 20190528
  Transmission Date: 20190711
  Serious: No
  Sender: FDA-Public Use
  Company Number: US-B.I. PHARMACEUTICALS,INC./RIDGEFIELD-2019-BI-022860

PATIENT
  Age: 75 Year
  Sex: Male

DRUGS (1)
  1. SPIRIVA RESPIMAT [Suspect]
     Active Substance: TIOTROPIUM BROMIDE
     Indication: CHRONIC OBSTRUCTIVE PULMONARY DISEASE
     Route: 055
     Dates: start: 20190506, end: 20190517

REACTIONS (4)
  - Dizziness [Recovered/Resolved]
  - Head discomfort [Recovered/Resolved]
  - Chest pain [Recovered/Resolved]
  - Blepharospasm [Recovered/Resolved]

NARRATIVE: CASE EVENT DATE: 20190506
